FAERS Safety Report 8793902 (Version 1)
Quarter: 2012Q4

REPORT INFORMATION
  Report Type: 
  Country: TR (occurrence: TR)
  Receive Date: 20120917
  Receipt Date: 20120917
  Transmission Date: 20130627
  Serious: Yes (Congenital Anomaly)
  Sender: FDA-Public Use
  Company Number: TR-BAYER-2012-094237

PATIENT
  Sex: Female

DRUGS (8)
  1. DACARBAZINE [Suspect]
     Route: 063
  2. DACARBAZINE [Suspect]
     Route: 063
  3. ADRIAMYCIN [Suspect]
     Route: 063
  4. ADRIAMYCIN [Suspect]
     Route: 063
  5. VINBLASTINE [Suspect]
     Route: 063
  6. VINBLASTINE [Suspect]
     Route: 063
  7. BLEOMYCIN [Suspect]
     Route: 063
  8. BLEOMYCIN [Suspect]
     Route: 063

REACTIONS (3)
  - Growth retardation [None]
  - Brachydactyly [None]
  - Phalangeal hypoplasia [None]
